FAERS Safety Report 25563925 (Version 1)
Quarter: 2025Q3

REPORT INFORMATION
  Report Type: Spontaneous
  Country: US (occurrence: US)
  Receive Date: 20250716
  Receipt Date: 20250716
  Transmission Date: 20251020
  Serious: Yes (Other)
  Sender: SHILPA MEDICARE
  Company Number: US-KOANAAP-SML-US-2025-00325

PATIENT
  Age: 72 Year
  Sex: Male

DRUGS (3)
  1. AZACITIDINE [Suspect]
     Active Substance: AZACITIDINE
     Indication: Acute myeloid leukaemia
  2. VENETOCLAX [Suspect]
     Active Substance: VENETOCLAX
     Indication: Acute myeloid leukaemia
  3. IVOSIDENIB [Suspect]
     Active Substance: IVOSIDENIB
     Indication: Acute myeloid leukaemia

REACTIONS (3)
  - Disease progression [Unknown]
  - Drug ineffective [Unknown]
  - Differentiation syndrome [Unknown]
